FAERS Safety Report 9417437 (Version 1)
Quarter: 2013Q3

REPORT INFORMATION
  Report Type: Spontaneous
  Country: US (occurrence: None)
  Receive Date: 20130722
  Receipt Date: 20130722
  Transmission Date: 20140515
  Serious: No
  Sender: FDA-Public Use
  Company Number: None

PATIENT
  Age: 66 Year
  Sex: Female
  Weight: 75.75 kg

DRUGS (1)
  1. HYDROCODONE/APAP [Suspect]
     Indication: PAIN
     Route: 048
     Dates: start: 20130601, end: 20130621

REACTIONS (7)
  - Drug ineffective [None]
  - Pain [None]
  - Dyspnoea [None]
  - Burning sensation [None]
  - Anger [None]
  - Thinking abnormal [None]
  - Product formulation issue [None]
